FAERS Safety Report 9789647 (Version 1)
Quarter: 2013Q4

REPORT INFORMATION
  Report Type: Spontaneous
  Country: US (occurrence: US)
  Receive Date: 20131231
  Receipt Date: 20131231
  Transmission Date: 20140711
  Serious: No
  Sender: FDA-Public Use
  Company Number: US-BAYER-2013-159236

PATIENT
  Age: 75 Year
  Sex: Male

DRUGS (2)
  1. AVELOX [Suspect]
     Indication: GASTROINTESTINAL DISORDER
     Dosage: 400 MG ONCE DAILY
     Route: 048
     Dates: start: 20131223, end: 20131225
  2. AVELOX [Suspect]
     Indication: INFECTION

REACTIONS (1)
  - Neuropathy peripheral [None]
